FAERS Safety Report 6391423-2 (Version None)
Quarter: 2009Q4

REPORT INFORMATION
  Report Type: 
  Country: None (occurrence: None)
  Receive Date: 20091005
  Receipt Date: 20090924
  Transmission Date: 20100525
  Serious: Yes (Other)
  Sender: FDA-Public Use
  Company Number: 2007SP006015

PATIENT
  Age: 56 Year
  Sex: Male
  Weight: 84.8226 kg

DRUGS (11)
  1. PEG-INTRON [Suspect]
     Indication: HEPATITIS C
     Dosage: ; SC
     Route: 058
     Dates: start: 20060317, end: 20070324
  2. PEG-INTRON [Suspect]
     Indication: HEPATITIS C
     Dosage: ; SC
     Route: 058
     Dates: start: 20090918
  3. RIBAVIRIN [Suspect]
     Indication: HEPATITIS C
     Dosage: ; PO
     Route: 048
     Dates: start: 20060317, end: 20070324
  4. RIBAVIRIN [Suspect]
     Indication: HEPATITIS C
     Dosage: ; PO
     Route: 048
     Dates: start: 20090918
  5. AMLODIPINE BESYLATE AND BENAZEPRIL HCL [Suspect]
  6. BL GLUCOSAMINE - CHONDROITIN [Concomitant]
  7. FISH OIL [Concomitant]
  8. LOTENSIN HCT [Concomitant]
  9. MILK THISTLE [Concomitant]
  10. NORVASC [Concomitant]
  11. VITAMIN E [Concomitant]

REACTIONS (10)
  - BLOOD POTASSIUM DECREASED [None]
  - CHILLS [None]
  - HYPERHIDROSIS [None]
  - MUSCLE ATROPHY [None]
  - ONYCHOMADESIS [None]
  - PLATELET COUNT DECREASED [None]
  - THERAPEUTIC RESPONSE UNEXPECTED [None]
  - TOOTH LOSS [None]
  - WEIGHT DECREASED [None]
  - WHITE BLOOD CELL COUNT DECREASED [None]
